FAERS Safety Report 14891080 (Version 1)
Quarter: 2018Q2

REPORT INFORMATION
  Report Type: Spontaneous
  Country: US (occurrence: US)
  Receive Date: 20180514
  Receipt Date: 20180514
  Transmission Date: 20180711
  Serious: Yes (Hospitalization)
  Sender: FDA-Public Use
  Company Number: US-NOVOPROD-598906

PATIENT
  Age: 55 Year
  Sex: Male
  Weight: 102.4 kg

DRUGS (1)
  1. OZEMPIC [Suspect]
     Active Substance: SEMAGLUTIDE
     Indication: TYPE 2 DIABETES MELLITUS
     Dosage: 0.25 MG, QW
     Route: 058
     Dates: start: 20180417

REACTIONS (3)
  - Gastrointestinal disorder [Unknown]
  - Musculoskeletal pain [Unknown]
  - Chromaturia [Unknown]

NARRATIVE: CASE EVENT DATE: 201804
